FAERS Safety Report 5479088-5 (Version None)
Quarter: 2007Q4

REPORT INFORMATION
  Report Type: 
  Country: None (occurrence: None)
  Receive Date: 20071006
  Receipt Date: 20070925
  Transmission Date: 20080405
  Serious: Yes (Hospitalization, Other)
  Sender: FDA-Public Use
  Company Number: US-PFIZER INC-2007081502

PATIENT
  Sex: Female
  Weight: 86.2 kg

DRUGS (13)
  1. DILANTIN [Suspect]
     Indication: EPILEPSY
  2. PHENYTOIN [Suspect]
  3. DEPAKOTE [Suspect]
  4. SYNTHROID [Concomitant]
  5. GLIPIZIDE [Concomitant]
  6. EFFEXOR XR [Concomitant]
  7. EFFEXOR XR [Concomitant]
  8. ZONISAMIDE [Concomitant]
  9. AVANDIA [Concomitant]
  10. LIPITOR [Concomitant]
  11. MOBIC [Concomitant]
  12. KLONOPIN [Concomitant]
  13. REMERON [Concomitant]

REACTIONS (22)
  - ABASIA [None]
  - ARTHROPATHY [None]
  - BALANCE DISORDER [None]
  - BODY HEIGHT DECREASED [None]
  - BONE DISORDER [None]
  - CARPAL TUNNEL SYNDROME [None]
  - CLAVICLE FRACTURE [None]
  - DIZZINESS [None]
  - DRUG SCREEN POSITIVE [None]
  - DRUG TOXICITY [None]
  - DYSARTHRIA [None]
  - FALL [None]
  - FEELING DRUNK [None]
  - GAIT DISTURBANCE [None]
  - GRAND MAL CONVULSION [None]
  - INTERVERTEBRAL DISC PROTRUSION [None]
  - PANCREATIC DISORDER [None]
  - PATELLOFEMORAL PAIN SYNDROME [None]
  - ROAD TRAFFIC ACCIDENT [None]
  - SCOLIOSIS [None]
  - THYROID DISORDER [None]
  - TYPE 1 DIABETES MELLITUS [None]
